FAERS Safety Report 4875609-1 (Version None)
Quarter: 2006Q1

REPORT INFORMATION
  Report Type: 
  Country: None (occurrence: None)
  Receive Date: 20060109
  Receipt Date: 20051205
  Transmission Date: 20060701
  Serious: Yes (Life-Threatening, Hospitalization)
  Sender: FDA-Public Use
  Company Number: DE-ROCHE-427649

PATIENT
  Sex: Female
  Weight: 87 kg

DRUGS (2)
  1. INTERFERON ALFA [Suspect]
     Indication: NON-HODGKIN'S LYMPHOMA
     Dosage: TAKEN AFTER MEALS
     Route: 065
     Dates: start: 20051117, end: 20051119
  2. MARCUMAR [Interacting]
     Indication: HEART VALVE REPLACEMENT
     Route: 048
     Dates: start: 20051105, end: 20051118

REACTIONS (2)
  - DRUG INTERACTION [None]
  - INTERNATIONAL NORMALISED RATIO INCREASED [None]
